FAERS Safety Report 21915515 (Version 1)
Quarter: 2023Q1

REPORT INFORMATION
  Report Type: Spontaneous
  Country: US (occurrence: None)
  Receive Date: 20230125
  Receipt Date: 20230125
  Transmission Date: 20230418
  Serious: No
  Sender: FDA-Public Use
  Company Number: None

PATIENT
  Sex: Male

DRUGS (1)
  1. SAPROPTERIN [Suspect]
     Active Substance: SAPROPTERIN
     Indication: Phenylketonuria
     Dosage: FREQUENCY : DAILY;?
     Route: 048
     Dates: start: 20221212

REACTIONS (2)
  - Wrong patient received product [None]
  - Extra dose administered [None]
